FAERS Safety Report 6276391-6 (Version None)
Quarter: 2009Q3

REPORT INFORMATION
  Report Type: 
  Country: None (occurrence: None)
  Receive Date: 20090720
  Receipt Date: 20090703
  Transmission Date: 20100115
  Serious: Yes (Other)
  Sender: FDA-Public Use
  Company Number: A-CH2009-25709

PATIENT
  Age: 81 Year
  Sex: Female
  Weight: 47.5 kg

DRUGS (8)
  1. TRACLEER [Suspect]
     Indication: PULMONARY ARTERIAL HYPERTENSION
     Dosage: 125 MG, BID, ORAL ; 62.5 MG, OD, ORAL ; 62.5 MG, BID, ORAL
     Route: 048
     Dates: end: 20090528
  2. TRACLEER [Suspect]
     Indication: PULMONARY ARTERIAL HYPERTENSION
     Dosage: 125 MG, BID, ORAL ; 62.5 MG, OD, ORAL ; 62.5 MG, BID, ORAL
     Route: 048
     Dates: start: 20090409
  3. LOFTYL (BUFLOMEDIL HYDROCHLORIDE) [Concomitant]
  4. TENORMIN [Concomitant]
  5. ALDACTAZINE (ALTIZIDE, SPIRONOLACTONE) [Concomitant]
  6. ASAFLOW (ACETYLSALCYLIC ACID) [Concomitant]
  7. HALCION [Concomitant]
  8. AMLODIPINE BESYLATE [Concomitant]

REACTIONS (4)
  - ALANINE AMINOTRANSFERASE INCREASED [None]
  - ASPARTATE AMINOTRANSFERASE INCREASED [None]
  - DIARRHOEA [None]
  - DRUG INEFFECTIVE [None]
